FAERS Safety Report 9331537 (Version 1)
Quarter: 2013Q2

REPORT INFORMATION
  Report Type: Spontaneous
  Country: US (occurrence: US)
  Receive Date: 20130605
  Receipt Date: 20130605
  Transmission Date: 20140414
  Serious: No
  Sender: FDA-Public Use
  Company Number: US-PFIZER INC-2013167326

PATIENT
  Age: 68 Year
  Sex: Male
  Weight: 96.15 kg

DRUGS (3)
  1. VIAGRA [Suspect]
     Indication: ERECTILE DYSFUNCTION
     Dosage: 100 MG, AS NEEDED
     Dates: start: 201210
  2. LOSARTAN POTASSIUM [Concomitant]
     Indication: BLOOD PRESSURE INCREASED
     Dosage: 50 MG, 1X/DAY
  3. COLCRYS [Concomitant]
     Indication: GOUT
     Dosage: 0.6 MG, 1X/DAY

REACTIONS (1)
  - Drug ineffective [Unknown]
